FAERS Safety Report 21688690 (Version 1)
Quarter: 2022Q4

REPORT INFORMATION
  Report Type: Spontaneous
  Country: KR (occurrence: KR)
  Receive Date: 20221206
  Receipt Date: 20221206
  Transmission Date: 20230113
  Serious: No
  Sender: FDA-Public Use
  Company Number: KR-PFIZER INC-202201344065

PATIENT
  Age: 68 Year
  Sex: Female
  Weight: 62 kg

DRUGS (7)
  1. PAXLOVID [Suspect]
     Active Substance: NIRMATRELVIR\RITONAVIR
     Indication: COVID-19 treatment
     Dosage: [PF-07321332 300 MG]/[RITONAVIR 100 MG]; 2X/DAY
     Route: 048
     Dates: start: 20221130
  2. LOXOPRIN [Concomitant]
     Indication: Inflammation
     Dosage: UNK
     Route: 048
     Dates: start: 20221130
  3. SYNATURA [Concomitant]
     Indication: Cough
     Dosage: UNK
     Route: 048
     Dates: start: 20221130
  4. SYNATURA [Concomitant]
     Indication: Productive cough
  5. ACETAMINOPHEN SAMNAM [Concomitant]
     Indication: Pyrexia
     Dosage: UNK
     Route: 048
     Dates: start: 20221201
  6. CODAEWON [Concomitant]
     Indication: Cough
     Dosage: UNK
     Route: 048
     Dates: start: 20221201
  7. CODAEWON [Concomitant]
     Indication: Productive cough

REACTIONS (2)
  - Intentional product misuse [Unknown]
  - Incorrect dose administered [Unknown]

NARRATIVE: CASE EVENT DATE: 20221101
